FAERS Safety Report 9202216 (Version 2)
Quarter: 2013Q2

REPORT INFORMATION
  Report Type: Spontaneous
  Country: FR (occurrence: FR)
  Receive Date: 20130401
  Receipt Date: 20130401
  Transmission Date: 20140414
  Serious: Yes (Other)
  Sender: FDA-Public Use
  Company Number: FR-TEVA-US023594

PATIENT
  Sex: Male
  Weight: 74 kg

DRUGS (15)
  1. MODIODAL [Suspect]
     Indication: SLEEP APNOEA SYNDROME
     Dosage: 400 MILLIGRAM DAILY; MORNING AND NOON
     Route: 048
     Dates: start: 200303
  2. MODIODAL [Suspect]
     Indication: SOMNOLENCE
     Dosage: OCCASIONALLY 2-5TABLETS DAILY
     Route: 048
     Dates: start: 2009
  3. MODIODAL [Suspect]
     Dosage: 600 MILLIGRAM DAILY; IN THE MIDDLE OF THE DAY
     Route: 048
  4. EFFEXOR [Concomitant]
     Indication: ASTHENIA
     Route: 065
  5. EFFEXOR [Concomitant]
     Indication: FIBROMYALGIA
  6. APROVEL [Concomitant]
     Indication: HYPERTENSION
     Dosage: 300 MILLIGRAM DAILY;
     Route: 048
     Dates: start: 199406
  7. AMLOR [Concomitant]
     Indication: HYPERTENSION
     Dosage: 5 MILLIGRAM DAILY;
     Route: 048
     Dates: start: 199305
  8. FLECAINE LP [Concomitant]
     Indication: ARRHYTHMIA
     Dosage: 200 MILLIGRAM DAILY;
     Dates: start: 200109
  9. KREDEX [Concomitant]
     Indication: HYPERTENSION
     Route: 048
     Dates: start: 2005
  10. PREVISCAN [Concomitant]
     Indication: ARRHYTHMIA
     Route: 048
     Dates: start: 2008
  11. TAHOR 40 [Concomitant]
     Indication: HYPERCHOLESTEROLAEMIA
     Dosage: 40 MILLIGRAM DAILY;
     Dates: start: 199803, end: 200612
  12. EZETROL [Concomitant]
     Dosage: 1 DOSAGE FORMS DAILY;
     Route: 048
     Dates: start: 2007
  13. ESIDREX [Concomitant]
     Indication: HYPERTENSION
     Dosage: 25 MG
     Dates: start: 200406
  14. ASPEGIC [Concomitant]
  15. ANTIDEPRESSANTS [Concomitant]
     Indication: FATIGUE

REACTIONS (14)
  - Cognitive disorder [Not Recovered/Not Resolved]
  - Fatigue [Not Recovered/Not Resolved]
  - Fibromyalgia [Not Recovered/Not Resolved]
  - Vertigo [Not Recovered/Not Resolved]
  - Feeling drunk [Not Recovered/Not Resolved]
  - Drug tolerance [Not Recovered/Not Resolved]
  - Hyperhidrosis [Not Recovered/Not Resolved]
  - Derealisation [Not Recovered/Not Resolved]
  - Myalgia [Not Recovered/Not Resolved]
  - Asthenia [Not Recovered/Not Resolved]
  - Dizziness [Not Recovered/Not Resolved]
  - Dry mouth [Not Recovered/Not Resolved]
  - Anxiety [Not Recovered/Not Resolved]
  - Flushing [Not Recovered/Not Resolved]
